FAERS Safety Report 18737723 (Version 1)
Quarter: 2021Q1

REPORT INFORMATION
  Report Type: Spontaneous
  Country: JP (occurrence: JP)
  Receive Date: 20210113
  Receipt Date: 20210113
  Transmission Date: 20210419
  Serious: Yes (Other)
  Sender: FDA-Public Use
  Company Number: JP-BIOGEN-2021BI00967004

PATIENT
  Age: 8 Year

DRUGS (1)
  1. SPINRAZA [Suspect]
     Active Substance: NUSINERSEN
     Indication: SPINAL MUSCULAR ATROPHY
     Route: 065

REACTIONS (4)
  - Cerebrospinal fluid leakage [Unknown]
  - Haemorrhage subcutaneous [Unknown]
  - Secretion discharge [Unknown]
  - Drug ineffective [Unknown]
